FAERS Safety Report 4915973-8 (Version None)
Quarter: 2006Q1

REPORT INFORMATION
  Report Type: 
  Country: None (occurrence: None)
  Receive Date: 20060214
  Receipt Date: 20060206
  Transmission Date: 20060701
  Serious: No
  Sender: FDA-Public Use
  Company Number: 2006BH002434

PATIENT
  Sex: Female

DRUGS (1)
  1. DIANEAL [Suspect]
     Indication: PERITONEAL DIALYSIS
     Dosage: UNKNOWN; UNK; IP
     Route: 033

REACTIONS (1)
  - PERITONITIS [None]
